FAERS Safety Report 10340690 (Version 2)
Quarter: 2014Q4

REPORT INFORMATION
  Report Type: Spontaneous
  Country: JP (occurrence: JP)
  Receive Date: 20140724
  Receipt Date: 20141026
  Transmission Date: 20150528
  Serious: Yes (Death, Other)
  Sender: FDA-Public Use
  Company Number: PHHY2012JP132629

PATIENT
  Age: 57 Year
  Sex: Male
  Weight: 51 kg

DRUGS (1)
  1. AFINITOR [Suspect]
     Active Substance: EVEROLIMUS
     Indication: METASTASIS
     Dosage: 5 MG, UNK
     Route: 048
     Dates: start: 20120202, end: 20120412

REACTIONS (5)
  - Diabetes mellitus [Recovered/Resolved]
  - Chronic myeloid leukaemia [Fatal]
  - Anaemia [Fatal]
  - Chronic myelomonocytic leukaemia [Unknown]
  - Malignant neoplasm progression [Not Recovered/Not Resolved]

NARRATIVE: CASE EVENT DATE: 20120412
